FAERS Safety Report 4478526-4 (Version None)
Quarter: 2004Q4

REPORT INFORMATION
  Report Type: 
  Country: None (occurrence: None)
  Receive Date: 20041013
  Receipt Date: 20040928
  Transmission Date: 20050328
  Serious: Yes (Hospitalization)
  Sender: FDA-Public Use
  Company Number: 8968

PATIENT
  Age: 73 Year
  Sex: Female

DRUGS (5)
  1. LEDERFOLINE [Suspect]
     Dosage: 325 MG DAILY IV
     Route: 042
     Dates: start: 20040417, end: 20040417
  2. OXALIPLATIN [Suspect]
     Dosage: 120 MG DAILY IV
     Route: 042
     Dates: start: 20040417, end: 20040417
  3. FLUOROURACIL [Suspect]
     Dosage: 325 MG DAILY IV
     Route: 042
     Dates: start: 20040417, end: 20040419
  4. SOLU-MEDROL [Suspect]
     Dosage: 80 MG DAILY IV
     Route: 042
     Dates: start: 20040417, end: 20040418
  5. ZOPHREN [Suspect]
     Dosage: 6 MG DAILY IV
     Route: 042
     Dates: start: 20040417, end: 20040418

REACTIONS (3)
  - CHILLS [None]
  - MALAISE [None]
  - PYREXIA [None]
